FAERS Safety Report 8183067-7 (Version None)
Quarter: 2012Q1

REPORT INFORMATION
  Report Type: 
  Country: None (occurrence: None)
  Receive Date: 20120201
  Receipt Date: 20110815
  Transmission Date: 20120608
  Serious: Yes (Other)
  Sender: FDA-Public Use
  Company Number: 296422USA

PATIENT
  Age: 47 Year
  Sex: Female

DRUGS (1)
  1. PROPOXYPHENE NAPSYLATE W/ ACETAMINOPHEN [Suspect]

REACTIONS (4)
  - HEART RATE IRREGULAR [None]
  - COUGH [None]
  - DYSPNOEA [None]
  - VENTRICULAR ARRHYTHMIA [None]
